FAERS Safety Report 23917742 (Version 1)
Quarter: 2024Q2

REPORT INFORMATION
  Report Type: Spontaneous
  Country: KR (occurrence: KR)
  Receive Date: 20240530
  Receipt Date: 20240530
  Transmission Date: 20240716
  Serious: Yes (Other)
  Sender: FDA-Public Use
  Company Number: KR-JNJFOC-20240563561

PATIENT
  Age: 24 Year
  Sex: Male

DRUGS (1)
  1. OPSUMIT [Suspect]
     Active Substance: MACITENTAN
     Indication: Product used for unknown indication
     Route: 048
     Dates: start: 20180119

REACTIONS (5)
  - Surgery [Unknown]
  - Herpes zoster [Unknown]
  - Polycythaemia [Unknown]
  - Atrial flutter [Unknown]
  - Condition aggravated [Unknown]
